FAERS Safety Report 21646883 (Version 1)
Quarter: 2022Q4

REPORT INFORMATION
  Report Type: Spontaneous
  Country: IT (occurrence: IT)
  Receive Date: 20221127
  Receipt Date: 20221127
  Transmission Date: 20230113
  Serious: Yes (Death, Life-Threatening, Hospitalization)
  Sender: FDA-Public Use
  Company Number: IT-TEVA-2022-IT-2829064

PATIENT
  Age: 49 Year
  Sex: Male

DRUGS (4)
  1. ACYCLOVIR [Suspect]
     Active Substance: ACYCLOVIR
     Indication: Herpes simplex
     Dosage: 2400 MILLIGRAM DAILY;
     Route: 065
  2. TOCILIZUMAB [Suspect]
     Active Substance: TOCILIZUMAB
     Indication: COVID-19
     Dosage: 1600 MILLIGRAM DAILY; 2 DOSES
     Route: 042
  3. HYDROXYCHLOROQUINE [Suspect]
     Active Substance: HYDROXYCHLOROQUINE
     Indication: COVID-19
     Dosage: 800 MILLIGRAM DAILY;
     Route: 065
  4. HYDROXYCHLOROQUINE [Suspect]
     Active Substance: HYDROXYCHLOROQUINE
     Dosage: 400 MILLIGRAM DAILY;
     Route: 065

REACTIONS (8)
  - Acute hepatic failure [Fatal]
  - Herpes simplex [Fatal]
  - Nervous system disorder [Unknown]
  - Metabolic disorder [Unknown]
  - Hepatic cytolysis [Unknown]
  - Shock [Unknown]
  - Drug ineffective [Unknown]
  - Off label use [Unknown]
